FAERS Safety Report 16936661 (Version 2)
Quarter: 2019Q4

REPORT INFORMATION
  Report Type: Spontaneous
  Country: US (occurrence: US)
  Receive Date: 20191018
  Receipt Date: 20191112
  Transmission Date: 20200122
  Serious: No
  Sender: FDA-Public Use
  Company Number: US-009507513-1910USA005393

PATIENT
  Sex: Female

DRUGS (8)
  1. METHYLPREDNISOLONE. [Concomitant]
     Active Substance: METHYLPREDNISOLONE
  2. MENOPUR [Concomitant]
     Active Substance: FOLLITROPIN\LUTEINIZING HORMONE
  3. LEUPROLIDE [Concomitant]
     Active Substance: LEUPROLIDE
  4. PROGESTERONE. [Concomitant]
     Active Substance: PROGESTERONE
  5. FOLLISTIM AQ [Suspect]
     Active Substance: FOLLITROPIN
     Indication: INFERTILITY FEMALE
     Dosage: STRENGTH: 900 IU/1.08 ML; 150 UNITS, EVERY DAY
     Route: 058
     Dates: start: 20190829
  6. CETROTIDE [Concomitant]
     Active Substance: CETRORELIX ACETATE
  7. CRINONE [Concomitant]
     Active Substance: PROGESTERONE
  8. NOVAREL [Concomitant]
     Active Substance: CHORIOGONADOTROPIN ALFA

REACTIONS (1)
  - Rash [Unknown]

NARRATIVE: CASE EVENT DATE: 2019
